FAERS Safety Report 7538213-2 (Version None)
Quarter: 2011Q2

REPORT INFORMATION
  Report Type: 
  Country: None (occurrence: None)
  Receive Date: 20110609
  Receipt Date: 20021122
  Transmission Date: 20111010
  Serious: Yes (Death, Hospitalization)
  Sender: FDA-Public Use
  Company Number: PHFR2002GB03303

PATIENT
  Sex: Female

DRUGS (3)
  1. CLOZARIL [Suspect]
     Dosage: 400 MG, QD
     Route: 050
     Dates: start: 19940927
  2. VENLAFAXINE [Concomitant]
  3. CHLORPROMAZINE [Concomitant]
     Dosage: 500 MG/DAY

REACTIONS (2)
  - LUNG NEOPLASM MALIGNANT [None]
  - PNEUMONIA [None]
